FAERS Safety Report 5705691-0 (Version None)
Quarter: 2008Q2

REPORT INFORMATION
  Report Type: 
  Country: None (occurrence: None)
  Receive Date: 20080415
  Receipt Date: 20080411
  Transmission Date: 20081010
  Serious: Yes (Other)
  Sender: FDA-Public Use
  Company Number: A0722906A

PATIENT
  Age: 46 Year
  Sex: Male
  Weight: 40 kg

DRUGS (8)
  1. NIQUITIN [Suspect]
     Indication: SMOKING CESSATION THERAPY
     Route: 062
     Dates: start: 20070601, end: 20080410
  2. MORPHINE [Concomitant]
     Dosage: 20AMP PER DAY
  3. TENOXICAM [Concomitant]
     Dosage: 1000MG PER DAY
  4. UNSPECIFIED MEDICATION [Concomitant]
     Dosage: 1000MG PER DAY
  5. DIAZEPAM [Concomitant]
     Dosage: 3TAB PER DAY
  6. TRYPTANOL [Concomitant]
     Dosage: 2TAB PER DAY
  7. UNSPECIFIED MEDICATION [Concomitant]
     Dosage: 2TAB PER DAY
  8. OMEPRAZOLE [Concomitant]
     Dosage: 1TAB PER DAY

REACTIONS (3)
  - CEREBROVASCULAR ACCIDENT [None]
  - INTENTIONAL DRUG MISUSE [None]
  - MYOCARDIAL INFARCTION [None]
